FAERS Safety Report 10314262 (Version 1)
Quarter: 2014Q3

REPORT INFORMATION
  Report Type: Spontaneous
  Country: US (occurrence: US)
  Receive Date: 20140718
  Receipt Date: 20140718
  Transmission Date: 20150326
  Serious: No
  Sender: FDA-Public Use
  Company Number: US-009507513-1407USA005138

PATIENT
  Sex: Male

DRUGS (1)
  1. PROPECIA [Suspect]
     Active Substance: FINASTERIDE
     Indication: ALOPECIA
     Dosage: UNK
     Route: 048
     Dates: start: 20140331, end: 20140423

REACTIONS (27)
  - Penis disorder [Not Recovered/Not Resolved]
  - Abdominal pain [Recovered/Resolved]
  - Local swelling [Unknown]
  - Feeling abnormal [Unknown]
  - Drug administration error [Unknown]
  - Fatigue [Not Recovered/Not Resolved]
  - Vasectomy [Unknown]
  - Groin pain [Recovered/Resolved]
  - Hot flush [Unknown]
  - Insomnia [Not Recovered/Not Resolved]
  - Depression [Not Recovered/Not Resolved]
  - Dry mouth [Recovering/Resolving]
  - Dyspepsia [Unknown]
  - Erectile dysfunction [Not Recovered/Not Resolved]
  - Disturbance in attention [Unknown]
  - Pelvic pain [Recovered/Resolved]
  - Sensory loss [Not Recovered/Not Resolved]
  - Abnormal loss of weight [Unknown]
  - Memory impairment [Unknown]
  - Depressed mood [Not Recovered/Not Resolved]
  - Feeling abnormal [Unknown]
  - Sexual dysfunction [Unknown]
  - Dry eye [Recovering/Resolving]
  - Decreased appetite [Unknown]
  - Blood testosterone decreased [Unknown]
  - Oedema mouth [Unknown]
  - Sexual dysfunction [Not Recovered/Not Resolved]

NARRATIVE: CASE EVENT DATE: 2014
